FAERS Safety Report 8733647 (Version 2)
Quarter: 2013Q1

REPORT INFORMATION
  Report Type: Spontaneous
  Country: BR (occurrence: BR)
  Receive Date: 20120821
  Receipt Date: 20130311
  Transmission Date: 20140127
  Serious: Yes (Life-Threatening, Other)
  Sender: FDA-Public Use
  Company Number: PHHY2012BR071580

PATIENT
  Age: 55 Year
  Sex: Female

DRUGS (3)
  1. DIOVAN HCT [Suspect]
     Indication: BLOOD PRESSURE
     Dosage: 1 TABLET IN MORNING
     Dates: start: 2010
  2. DIOVAN HCT [Suspect]
     Dosage: 1 TABLET IN THE MORNING, 1 TABLET IN THE AFTERNOON AND SOMETIMES 1 IN THE DAWN
  3. DIOVAN HCT [Suspect]
     Dosage: 1 TABLET IN MORNING
     Dates: start: 2010

REACTIONS (11)
  - Feeling abnormal [Unknown]
  - Asthma [Unknown]
  - Dyspnoea [Recovered/Resolved]
  - Hypertension [Recovered/Resolved]
  - Headache [Recovered/Resolved]
  - Dizziness [Recovering/Resolving]
  - Hypokinesia [Unknown]
  - Aphagia [Unknown]
  - Nausea [Recovered/Resolved]
  - Vomiting [Recovered/Resolved]
  - Local swelling [Recovered/Resolved]
